FAERS Safety Report 9358085 (Version 2)
Quarter: 2013Q3

REPORT INFORMATION
  Report Type: Spontaneous
  Country: US (occurrence: US)
  Receive Date: 20130620
  Receipt Date: 20130808
  Transmission Date: 20140515
  Serious: No
  Sender: FDA-Public Use
  Company Number: US-PFIZER INC-2013182536

PATIENT
  Age: 63 Year
  Sex: Male

DRUGS (25)
  1. SUTENT [Suspect]
     Indication: RENAL CANCER
     Dosage: 50 MG, CYCLIC (DAILY, QD X4 WEEKS ON/2 OFF)
     Route: 048
     Dates: start: 20130314
  2. XOPENEX [Concomitant]
     Dosage: UNK
  3. SYNTHROID [Concomitant]
     Dosage: UNK
  4. ABILIFY [Concomitant]
     Dosage: UNK
  5. XARELTO [Concomitant]
     Dosage: UNK
  6. KLOR-CON [Concomitant]
     Dosage: UNK
  7. FUROSEMIDE [Concomitant]
     Dosage: UNK
  8. PRAVACHOL [Concomitant]
     Dosage: UNK
  9. TOPROL XL [Concomitant]
     Dosage: UNK
  10. PROZAC [Concomitant]
     Dosage: UNK
  11. LISINOPRIL [Concomitant]
     Dosage: UNK
  12. IMDUR [Concomitant]
     Dosage: UNK
  13. DIGOXIN [Concomitant]
     Dosage: UNK
  14. REGLAN [Concomitant]
     Dosage: UNK
  15. ZYLOPRIM [Concomitant]
     Dosage: UNK
  16. PLAVIX [Concomitant]
     Dosage: UNK
  17. GLIPIZIDE [Concomitant]
     Dosage: UNK
  18. HYDROCHLOROTHIAZIDE [Concomitant]
     Dosage: UNK
  19. AMIODARONE [Concomitant]
     Dosage: UNK
  20. IPRATROPIUM BROMIDE/SALBUTAMOL [Concomitant]
     Dosage: UNK
  21. IRON [Concomitant]
     Dosage: UNK
  22. PRO-AIR [Concomitant]
     Dosage: UNK
  23. NITROSTAT [Concomitant]
     Dosage: UNK
  24. PROVENTIL [Concomitant]
     Dosage: UNK
  25. CIPRO [Concomitant]
     Dosage: UNK

REACTIONS (1)
  - Decreased appetite [Unknown]
